FAERS Safety Report 5626768-4 (Version None)
Quarter: 2008Q1

REPORT INFORMATION
  Report Type: 
  Country: None (occurrence: None)
  Receive Date: 20080214
  Receipt Date: 20080205
  Transmission Date: 20080703
  Serious: Yes (Congenital Anomaly)
  Sender: FDA-Public Use
  Company Number: PR-PFIZER INC-2008011605

PATIENT

DRUGS (4)
  1. VIRACEPT [Suspect]
     Indication: HIV INFECTION
     Dosage: DAILY DOSE:2500MG
     Route: 048
     Dates: start: 20070828, end: 20070917
  2. COMBIVIR [Suspect]
     Indication: HIV INFECTION
     Dosage: DAILY DOSE:900MG
     Route: 048
     Dates: start: 20070828
  3. RITONAVIR [Suspect]
     Dosage: DAILY DOSE:200MG
     Route: 048
  4. INVIRASE [Suspect]
     Dosage: DAILY DOSE:2000MG
     Route: 048

REACTIONS (4)
  - ARTERIOVENOUS MALFORMATION [None]
  - DRUG EXPOSURE DURING PREGNANCY [None]
  - PATENT DUCTUS ARTERIOSUS [None]
  - TRISOMY 21 [None]
